FAERS Safety Report 25958406 (Version 1)
Quarter: 2025Q4

REPORT INFORMATION
  Report Type: Spontaneous
  Country: US (occurrence: US)
  Receive Date: 20251024
  Receipt Date: 20251024
  Transmission Date: 20260117
  Serious: Yes (Other)
  Sender: TEVA
  Company Number: US-TEVA-VS-3383559

PATIENT

DRUGS (1)
  1. AMPHETAMINE SULFATE\DEXTROAMPHETAMINE [Suspect]
     Active Substance: AMPHETAMINE SULFATE\DEXTROAMPHETAMINE
     Indication: Product used for unknown indication
     Dosage: IR,  HALF THE PILL IN THE MORNING/TOOK 15MG THAT MORNING
     Route: 065

REACTIONS (9)
  - Heart rate increased [Unknown]
  - Hyperhidrosis [Unknown]
  - Pain in extremity [Unknown]
  - Pallor [Unknown]
  - Chest pain [Unknown]
  - Depersonalisation/derealisation disorder [Unknown]
  - Feeling jittery [Unknown]
  - Nausea [Unknown]
  - Dizziness [Unknown]
